FAERS Safety Report 9473703 (Version 1)
Quarter: 2013Q3

REPORT INFORMATION
  Report Type: Spontaneous
  Country: US (occurrence: US)
  Receive Date: 20130823
  Receipt Date: 20130823
  Transmission Date: 20140515
  Serious: No
  Sender: FDA-Public Use
  Company Number: US-BRISTOL-MYERS SQUIBB COMPANY-16913725

PATIENT
  Age: 64 Year
  Sex: Male
  Weight: 85.2 kg

DRUGS (4)
  1. SPRYCEL [Suspect]
     Indication: CHRONIC MYELOID LEUKAEMIA
     Route: 048
     Dates: start: 2004
  2. SIMVASTIN [Concomitant]
  3. ASPIRIN [Concomitant]
  4. VITAMIN D [Concomitant]

REACTIONS (3)
  - Pleurisy [Not Recovered/Not Resolved]
  - Cough [Not Recovered/Not Resolved]
  - Local swelling [Not Recovered/Not Resolved]
